FAERS Safety Report 5844727-3 (Version None)
Quarter: 2008Q3

REPORT INFORMATION
  Report Type: 
  Country: None (occurrence: None)
  Receive Date: 20080812
  Receipt Date: 20080731
  Transmission Date: 20090109
  Serious: No
  Sender: FDA-Public Use
  Company Number: US024271

PATIENT
  Sex: Female

DRUGS (1)
  1. ALERTEC [Suspect]
     Indication: NARCOLEPSY
     Dosage: 100 MG 3 TO 4 TIMES DAILY ORAL
     Route: 048
     Dates: start: 20071101, end: 20080714

REACTIONS (2)
  - DRUG EXPOSURE DURING PREGNANCY [None]
  - PREGNANCY [None]
